FAERS Safety Report 20246920 (Version 2)
Quarter: 2022Q1

REPORT INFORMATION
  Report Type: Spontaneous
  Country: US (occurrence: US)
  Receive Date: 20211229
  Receipt Date: 20220331
  Transmission Date: 20220423
  Serious: Yes (Hospitalization, Other)
  Sender: FDA-Public Use
  Company Number: US-GW PHARMA-202112USGW06385

PATIENT
  Sex: Female
  Weight: 59.9 kg

DRUGS (1)
  1. EPIDIOLEX [Suspect]
     Active Substance: CANNABIDIOL
     Indication: Lennox-Gastaut syndrome
     Dosage: 10.01 MG/KG/DAY, 300 MILLIGRAM, BID
     Route: 048

REACTIONS (1)
  - Seizure [Unknown]
